FAERS Safety Report 6160945-1 (Version None)
Quarter: 2009Q2

REPORT INFORMATION
  Report Type: 
  Country: None (occurrence: None)
  Receive Date: 20090417
  Receipt Date: 20090417
  Transmission Date: 20091009
  Serious: Yes (Disabling)
  Sender: FDA-Public Use
  Company Number: None

PATIENT
  Sex: Female
  Weight: 104.3273 kg

DRUGS (1)
  1. CLINDAMYCIN HYDROCHLORIDE [Suspect]
     Indication: PHARYNGITIS STREPTOCOCCAL
     Dosage: 400 MG 4X A DAY PO
     Route: 048
     Dates: start: 20090401, end: 20090407

REACTIONS (6)
  - ARTHRALGIA [None]
  - ARTHROPATHY [None]
  - CONTUSION [None]
  - DEAFNESS UNILATERAL [None]
  - DRUG HYPERSENSITIVITY [None]
  - JOINT SWELLING [None]
